FAERS Safety Report 21245078 (Version 3)
Quarter: 2022Q4

REPORT INFORMATION
  Report Type: Report from Study
  Country: CO (occurrence: CO)
  Receive Date: 20220823
  Receipt Date: 20221221
  Transmission Date: 20230113
  Serious: Yes (Hospitalization, Other)
  Sender: FDA-Public Use
  Company Number: CO-ABBVIE-22K-036-4447047-00

PATIENT
  Age: 77 Year
  Sex: Male

DRUGS (3)
  1. VENETOCLAX [Suspect]
     Active Substance: VENETOCLAX
     Indication: Acute myeloid leukaemia
     Dosage: 100 MILLIGRAM
     Route: 048
     Dates: start: 202209, end: 2022
  2. VENETOCLAX [Suspect]
     Active Substance: VENETOCLAX
     Indication: Acute myeloid leukaemia
     Route: 048
     Dates: start: 20220305, end: 20220727
  3. AZACITIDINE [Suspect]
     Active Substance: AZACITIDINE
     Indication: Acute myeloid leukaemia
     Route: 058
     Dates: end: 20220721

REACTIONS (17)
  - Tooth extraction [Recovering/Resolving]
  - Red blood cell count decreased [Recovering/Resolving]
  - Syncope [Recovering/Resolving]
  - Platelet count decreased [Recovering/Resolving]
  - White blood cell count decreased [Recovering/Resolving]
  - Bacteraemia [Recovering/Resolving]
  - Pyrexia [Recovering/Resolving]
  - Tremor [Not Recovered/Not Resolved]
  - Discouragement [Not Recovered/Not Resolved]
  - Pallor [Not Recovered/Not Resolved]
  - Tooth injury [Not Recovered/Not Resolved]
  - Underweight [Unknown]
  - Decreased appetite [Not Recovered/Not Resolved]
  - Petechiae [Not Recovered/Not Resolved]
  - Abdominal pain upper [Not Recovered/Not Resolved]
  - Weight decreased [Not Recovered/Not Resolved]
  - Asthenia [Unknown]

NARRATIVE: CASE EVENT DATE: 20220601
